FAERS Safety Report 20877777 (Version 1)
Quarter: 2022Q2

REPORT INFORMATION
  Report Type: Spontaneous
  Country: DE (occurrence: DE)
  Receive Date: 20220526
  Receipt Date: 20220526
  Transmission Date: 20220721
  Serious: Yes (Hospitalization, Other)
  Sender: FDA-Public Use
  Company Number: DE-PFM-2022-03898

PATIENT
  Age: 56 Year
  Sex: Female

DRUGS (2)
  1. BINIMETINIB [Suspect]
     Active Substance: BINIMETINIB
     Indication: Malignant melanoma
     Dosage: 45 MG, BID (2/DAY)
     Route: 065
  2. RIBOCICLIB [Suspect]
     Active Substance: RIBOCICLIB
     Indication: Malignant melanoma
     Dosage: 200MG PER DAY 21D Q28
     Route: 065

REACTIONS (10)
  - Pneumonitis [Recovered/Resolved]
  - Ejection fraction decreased [Recovered/Resolved]
  - Blood lactate dehydrogenase increased [Unknown]
  - Protein S increased [Unknown]
  - General physical health deterioration [Unknown]
  - Dyspnoea [Unknown]
  - Dermatitis acneiform [Recovered/Resolved]
  - Product use in unapproved indication [Unknown]
  - Product use issue [Unknown]
  - Off label use [Unknown]
